FAERS Safety Report 5943912-X (Version None)
Quarter: 2009Q1

REPORT INFORMATION
  Report Type: 
  Country: None (occurrence: None)
  Receive Date: 20081104
  Receipt Date: 20081021
  Transmission Date: 20090719
  Serious: Yes (Other)
  Sender: FDA-Public Use
  Company Number: 2008S1019094

PATIENT
  Age: 74 Year
  Sex: Male

DRUGS (14)
  1. FUROSEMIDE INTENSOL [Suspect]
     Indication: MYELODYSPLASTIC SYNDROME
  2. HYDROCHLOROTHIAZIDE [Suspect]
     Indication: MYELODYSPLASTIC SYNDROME
  3. LENALIDOMIDE [Suspect]
     Indication: MYELODYSPLASTIC SYNDROME
     Dosage: 5 MG; DAILY; ORAL
     Route: 048
     Dates: start: 20080530
  4. LENALIDOMIDE [Suspect]
     Indication: MYELODYSPLASTIC SYNDROME
     Dosage: 10 MG; DAILY; ORAL
     Route: 048
     Dates: start: 20060530, end: 20060801
  5. LENALIDOMIDE [Suspect]
     Indication: MYELODYSPLASTIC SYNDROME
     Dosage: 10 MG; DAILY; ORAL
     Route: 048
     Dates: start: 20080225, end: 20080430
  6. EPOGEN [Concomitant]
  7. WARFARIN [Concomitant]
  8. HYDROXYCARBAMIDE [Suspect]
  9. ASCORBIC ACID [Concomitant]
  10. FOLIC ACID [Concomitant]
  11. CYANOCOBALAMIN [Concomitant]
  12. FERROUS FUMARATE [Concomitant]
  13. TRINSICON [Concomitant]
  14. LEVOTHYROXINE SODIUM [Concomitant]

REACTIONS (5)
  - BLOOD CREATININE INCREASED [None]
  - BLOOD UREA INCREASED [None]
  - FATIGUE [None]
  - NEPHROLITHIASIS [None]
  - RENAL IMPAIRMENT [None]
